FAERS Safety Report 13895793 (Version 12)
Quarter: 2019Q3

REPORT INFORMATION
  Report Type: Report from Study
  Country: CN (occurrence: CN)
  Receive Date: 20170823
  Receipt Date: 20190926
  Transmission Date: 20191004
  Serious: Yes (Other)
  Sender: FDA-Public Use
  Company Number: PHHY2017CN122060

PATIENT
  Age: 36 Year
  Sex: Male

DRUGS (58)
  1. MYFORTIC [Suspect]
     Active Substance: MYCOPHENOLATE SODIUM
     Dosage: 360 MG, QD
     Route: 065
     Dates: start: 20170731, end: 20170731
  2. MYFORTIC [Suspect]
     Active Substance: MYCOPHENOLATE SODIUM
     Dosage: 1080 MG, QD
     Route: 065
     Dates: start: 20170808, end: 20170814
  3. ALPROSTADIL. [Concomitant]
     Active Substance: ALPROSTADIL
     Dosage: 10 UG, BID
     Route: 042
     Dates: end: 20170818
  4. TEICOPLANIN [Concomitant]
     Active Substance: TEICOPLANIN
     Indication: PRODUCT USED FOR UNKNOWN INDICATION
     Dosage: 200 MG, QOD
     Route: 041
     Dates: start: 20170727, end: 20170806
  5. VITAMIIN C [Concomitant]
     Active Substance: ASCORBIC ACID
     Indication: PRODUCT USED FOR UNKNOWN INDICATION
     Dosage: 2 G, QD
     Route: 041
     Dates: start: 20170727, end: 20170809
  6. AMLODIPINE BESYLATE. [Concomitant]
     Active Substance: AMLODIPINE BESYLATE
     Dosage: 5 MG, Q12H
     Route: 048
     Dates: start: 20170728
  7. PHENTOLAMINE MESYLATE. [Concomitant]
     Active Substance: PHENTOLAMINE MESYLATE
     Dosage: 30 MG, BID
     Route: 041
     Dates: start: 20180729, end: 20180730
  8. DOPAMINE HYDROCHLORIDE. [Concomitant]
     Active Substance: DOPAMINE HYDROCHLORIDE
     Indication: PRODUCT USED FOR UNKNOWN INDICATION
     Dosage: 40 MG, ST
     Route: 041
     Dates: start: 20170728, end: 20170728
  9. GLUCOSE [Concomitant]
     Active Substance: DEXTROSE
     Indication: PRODUCT USED FOR UNKNOWN INDICATION
     Dosage: 500 ML, QD
     Route: 041
     Dates: start: 20170728, end: 20170728
  10. CONCENTRATED SODIUM CHLORIDE [Concomitant]
     Active Substance: SODIUM CHLORIDE
     Indication: PRODUCT USED FOR UNKNOWN INDICATION
     Dosage: 500 ML, BID
     Route: 041
     Dates: start: 20170728, end: 20170728
  11. CASPOFUNGIN [Concomitant]
     Active Substance: CASPOFUNGIN
     Dosage: 50 MG, QD
     Route: 041
     Dates: start: 20170729, end: 20170729
  12. VITAMIIN C [Concomitant]
     Active Substance: ASCORBIC ACID
     Dosage: 2 G, QD
     Route: 041
     Dates: start: 20170728, end: 20170728
  13. ALLOPURINOL. [Concomitant]
     Active Substance: ALLOPURINOL
     Indication: BLOOD URIC ACID INCREASED
     Dosage: 0.25 G, ST
     Route: 048
     Dates: start: 20170728, end: 20170728
  14. ALLOPURINOL. [Concomitant]
     Active Substance: ALLOPURINOL
     Dosage: 0.1 G, TID
     Route: 048
     Dates: start: 20180704
  15. LOSARTAN POTASSIUM AND HYDROCHLOROTHIAZIDE [Concomitant]
     Active Substance: HYDROCHLOROTHIAZIDE\LOSARTAN POTASSIUM
     Dosage: 62.5 MG, QD
     Route: 048
     Dates: start: 20170728, end: 20170729
  16. FUROSEMIDE. [Concomitant]
     Active Substance: FUROSEMIDE
     Indication: PRODUCT USED FOR UNKNOWN INDICATION
     Dosage: 100 MG, BID
     Route: 041
     Dates: start: 20170804, end: 20170806
  17. FUROSEMIDE. [Concomitant]
     Active Substance: FUROSEMIDE
     Dosage: 40 MG, TID
     Route: 042
     Dates: start: 20170728, end: 20170730
  18. CEFOPERAZONE + SULBACTAM [Concomitant]
     Active Substance: CEFOPERAZONE SODIUM\SULBACTAM
     Dosage: 1.5 G, QD
     Route: 042
     Dates: start: 20170729, end: 20170729
  19. BENZBROMARONE [Concomitant]
     Active Substance: BENZBROMARONE
     Indication: BLOOD URIC ACID INCREASED
     Dosage: 50 MG, QD
     Route: 048
     Dates: start: 20170728, end: 20170818
  20. METOPROLOL TARTRATE. [Concomitant]
     Active Substance: METOPROLOL TARTRATE
     Dosage: 25 MG, BID
     Route: 048
     Dates: start: 20171115
  21. PHENTOLAMINE MESYLATE. [Concomitant]
     Active Substance: PHENTOLAMINE MESYLATE
     Indication: PRODUCT USED FOR UNKNOWN INDICATION
     Dosage: 30 MG, ST
     Route: 041
     Dates: start: 20170728, end: 20170728
  22. MYFORTIC [Suspect]
     Active Substance: MYCOPHENOLATE SODIUM
     Dosage: 720 MG, QD
     Route: 065
     Dates: start: 20170803, end: 20170807
  23. MYFORTIC [Suspect]
     Active Substance: MYCOPHENOLATE SODIUM
     Dosage: 720 MG, QD
     Route: 065
     Dates: start: 20170815, end: 20180816
  24. CICLOSPORIN [Suspect]
     Active Substance: CYCLOSPORINE
     Indication: IMMUNOSUPPRESSANT DRUG THERAPY
     Dosage: 200 MG, QD
     Route: 065
     Dates: start: 20170808
  25. ULINASTATIN [Concomitant]
     Active Substance: ULINASTATIN
     Indication: PRODUCT USED FOR UNKNOWN INDICATION
     Dosage: 10 DF (WU), BID
     Route: 042
     Dates: start: 20170727, end: 20170809
  26. HUMAN ALBUMIN [Concomitant]
     Active Substance: ALBUMIN HUMAN
     Indication: PRODUCT USED FOR UNKNOWN INDICATION
     Dosage: 25 G, QD
     Route: 041
     Dates: start: 20170731, end: 20170806
  27. CALCIUM CHLORIDE. [Concomitant]
     Active Substance: CALCIUM CHLORIDE
     Indication: PRODUCT USED FOR UNKNOWN INDICATION
     Dosage: 2 G, QD
     Route: 042
     Dates: start: 20170805, end: 20170805
  28. CALCIUM GLUCONATE. [Concomitant]
     Active Substance: CALCIUM GLUCONATE
     Indication: PRODUCT USED FOR UNKNOWN INDICATION
     Dosage: 10 ML, ST
     Route: 042
     Dates: start: 20170728, end: 20170728
  29. MYFORTIC [Suspect]
     Active Substance: MYCOPHENOLATE SODIUM
     Dosage: 360 MG, QD
     Route: 065
     Dates: start: 20170802, end: 20170802
  30. CICLOSPORIN [Suspect]
     Active Substance: CYCLOSPORINE
     Indication: RENAL TRANSPLANT
     Dosage: 250 MG, QD
     Route: 065
     Dates: start: 20170728, end: 20170807
  31. PREDNISONE. [Suspect]
     Active Substance: PREDNISONE
     Dosage: 20 MG, QD
     Route: 065
     Dates: start: 20170807
  32. FUROSEMIDE. [Concomitant]
     Active Substance: FUROSEMIDE
     Dosage: 40 MG, BID
     Route: 042
     Dates: start: 20170731, end: 20170806
  33. MYFORTIC [Suspect]
     Active Substance: MYCOPHENOLATE SODIUM
     Indication: RENAL TRANSPLANT
     Dosage: 1440 MG, QD
     Route: 065
     Dates: start: 20170728, end: 20170729
  34. MYFORTIC [Suspect]
     Active Substance: MYCOPHENOLATE SODIUM
     Indication: IMMUNOSUPPRESSANT DRUG THERAPY
     Dosage: 1080 MG, QD
     Route: 065
     Dates: start: 20170730, end: 20170730
  35. ALPROSTADIL. [Concomitant]
     Active Substance: ALPROSTADIL
     Indication: PRODUCT USED FOR UNKNOWN INDICATION
     Dosage: 10 UG, BID
     Route: 042
     Dates: start: 20170727
  36. ALPROSTADIL. [Concomitant]
     Active Substance: ALPROSTADIL
     Dosage: 10 U, QD
     Route: 042
     Dates: start: 20170728, end: 20170728
  37. CEFOPERAZONE + SULBACTAM [Concomitant]
     Active Substance: CEFOPERAZONE SODIUM\SULBACTAM
     Indication: PRODUCT USED FOR UNKNOWN INDICATION
     Dosage: 1.5 G, Q8H
     Route: 042
     Dates: start: 20170727, end: 20170806
  38. VALSARTAN. [Concomitant]
     Active Substance: VALSARTAN
     Indication: HYPERTENSION
     Dosage: 180 MG, QD
     Route: 048
     Dates: start: 20180704
  39. BASILIXIMAB [Suspect]
     Active Substance: BASILIXIMAB
     Indication: RENAL TRANSPLANT
     Dosage: 20 MG, QD
     Route: 065
     Dates: start: 20170727, end: 20170727
  40. METHYLPREDNISOLONE. [Suspect]
     Active Substance: METHYLPREDNISOLONE
     Indication: IMMUNOSUPPRESSANT DRUG THERAPY
     Dosage: 500 MG, QD
     Route: 065
     Dates: start: 20170727, end: 20170727
  41. METHYLPREDNISOLONE. [Suspect]
     Active Substance: METHYLPREDNISOLONE
     Dosage: 300 MG, QD
     Route: 065
     Dates: start: 20170728, end: 20170729
  42. INOSINE [Concomitant]
     Active Substance: INOSINE
     Indication: PRODUCT USED FOR UNKNOWN INDICATION
     Dosage: 1 G, QD
     Route: 041
     Dates: start: 20170727, end: 20170809
  43. INOSINE [Concomitant]
     Active Substance: INOSINE
     Dosage: 1 G, QD
     Route: 041
     Dates: start: 20170728, end: 20170728
  44. ALLOPURINOL. [Concomitant]
     Active Substance: ALLOPURINOL
     Dosage: 0.25 G, QD
     Route: 048
     Dates: start: 20170728, end: 20170818
  45. AMLODIPINE BESYLATE. [Concomitant]
     Active Substance: AMLODIPINE BESYLATE
     Indication: HYPERTENSION
     Dosage: 5 MG, QD
     Route: 048
     Dates: start: 20170728, end: 20170729
  46. FUROSEMIDE. [Concomitant]
     Active Substance: FUROSEMIDE
     Dosage: 100 MG, ST
     Route: 041
     Dates: start: 20170728, end: 20170728
  47. BASILIXIMAB [Suspect]
     Active Substance: BASILIXIMAB
     Indication: IMMUNOSUPPRESSANT DRUG THERAPY
     Dosage: 20 MG, QD
     Route: 065
     Dates: start: 20170730, end: 20170730
  48. METHYLPREDNISOLONE. [Suspect]
     Active Substance: METHYLPREDNISOLONE
     Dosage: 250 MG, QD
     Route: 065
     Dates: start: 20170730, end: 20170730
  49. PREDNISONE. [Suspect]
     Active Substance: PREDNISONE
     Indication: IMMUNOSUPPRESSANT DRUG THERAPY
     Dosage: 30 MG, QD
     Route: 065
     Dates: start: 20170729, end: 20170806
  50. AMBROXOL HYDROCHLORIDE [Concomitant]
     Active Substance: AMBROXOL HYDROCHLORIDE
     Indication: PRODUCTIVE COUGH
     Dosage: 30 MG, BID
     Route: 055
     Dates: start: 20170727, end: 20170809
  51. LANSOPRAZOLE. [Concomitant]
     Active Substance: LANSOPRAZOLE
     Indication: PRODUCT USED FOR UNKNOWN INDICATION
     Dosage: 30 MG, QD
     Route: 042
     Dates: start: 20170727, end: 20170806
  52. CASPOFUNGIN [Concomitant]
     Active Substance: CASPOFUNGIN
     Indication: PRODUCT USED FOR UNKNOWN INDICATION
     Dosage: 50 MG, QD
     Route: 041
     Dates: start: 20170727, end: 20170806
  53. METOPROLOL TARTRATE. [Concomitant]
     Active Substance: METOPROLOL TARTRATE
     Indication: HYPERTENSION
     Dosage: 25 MG, Q12H
     Route: 048
     Dates: start: 20170728, end: 20170818
  54. AMLODIPINE BESYLATE. [Concomitant]
     Active Substance: AMLODIPINE BESYLATE
     Dosage: 5 MG, Q12H
     Route: 048
     Dates: end: 20170818
  55. AMLODIPINE BESYLATE. [Concomitant]
     Active Substance: AMLODIPINE BESYLATE
     Dosage: 10 MG, QD
     Route: 048
     Dates: start: 20180704
  56. LOSARTAN POTASSIUM AND HYDROCHLOROTHIAZIDE [Concomitant]
     Active Substance: HYDROCHLOROTHIAZIDE\LOSARTAN POTASSIUM
     Indication: HYPERTENSION
     Dosage: 62.5 MG, QD
     Route: 048
     Dates: start: 20170728, end: 20180818
  57. PHENTOLAMINE MESYLATE. [Concomitant]
     Active Substance: PHENTOLAMINE MESYLATE
     Dosage: 30 MG, BID
     Route: 041
     Dates: start: 20170804, end: 20170806
  58. INSULIN [Concomitant]
     Active Substance: INSULIN NOS
     Indication: PRODUCT USED FOR UNKNOWN INDICATION
     Dosage: 8 IU, ST
     Route: 041
     Dates: start: 20170728, end: 20170728

REACTIONS (19)
  - Blood calcium increased [Recovered/Resolved]
  - Lip swelling [Recovered/Resolved]
  - C-reactive protein increased [Unknown]
  - Delayed graft function [Recovered/Resolved with Sequelae]
  - Diarrhoea [Recovered/Resolved]
  - White blood cell count increased [Unknown]
  - Dermatitis herpetiformis [Recovered/Resolved]
  - Blood creatinine increased [Recovered/Resolved]
  - Neutrophil count increased [Unknown]
  - Incision site pain [Recovered/Resolved]
  - Eczema [Recovered/Resolved with Sequelae]
  - Lymphocyte count decreased [Unknown]
  - Platelet count decreased [Unknown]
  - Blood urea increased [Unknown]
  - Lip pain [Recovered/Resolved]
  - Hypertension [Recovered/Resolved with Sequelae]
  - Frequent bowel movements [Recovered/Resolved]
  - Diarrhoea [Recovered/Resolved]
  - Incision site pain [Recovered/Resolved]

NARRATIVE: CASE EVENT DATE: 20170728
